FAERS Safety Report 22116411 (Version 1)
Quarter: 2023Q1

REPORT INFORMATION
  Report Type: Spontaneous
  Country: US (occurrence: US)
  Receive Date: 20230320
  Receipt Date: 20230320
  Transmission Date: 20230418
  Serious: Yes (Hospitalization)
  Sender: FDA-Public Use
  Company Number: US-CHIESI-2023CHF01414

PATIENT
  Age: 76 Year
  Sex: Female
  Weight: 49 kg

DRUGS (2)
  1. FERRIPROX [Suspect]
     Active Substance: DEFERIPRONE
     Indication: Myelodysplastic syndrome
     Dosage: 2000 MILLIGRAM, BID
     Route: 048
     Dates: start: 20230217
  2. FERRIPROX [Suspect]
     Active Substance: DEFERIPRONE
     Indication: Off label use

REACTIONS (6)
  - Loss of consciousness [Recovering/Resolving]
  - Wound [Recovering/Resolving]
  - Dizziness [Recovering/Resolving]
  - Fall [Recovering/Resolving]
  - Off label use [Not Recovered/Not Resolved]
  - Off label use [Not Recovered/Not Resolved]

NARRATIVE: CASE EVENT DATE: 20230217
